FAERS Safety Report 4742604-2 (Version None)
Quarter: 2005Q3

REPORT INFORMATION
  Report Type: 
  Country: None (occurrence: None)
  Receive Date: 20050811
  Receipt Date: 20050802
  Transmission Date: 20060218
  Serious: Yes (Hospitalization)
  Sender: FDA-Public Use
  Company Number: PHRM2005FR02221

PATIENT
  Age: 75 Year
  Sex: Female

DRUGS (3)
  1. STILNOX [Suspect]
     Dosage: 5 MG, PRN
     Route: 048
     Dates: start: 20031222
  2. NOLVADEX [Concomitant]
     Dates: start: 20041001, end: 20050301
  3. FEMARA [Suspect]
     Indication: BREAST CANCER
     Dosage: 2.5 MG, QD
     Route: 048
     Dates: start: 20050310, end: 20050319

REACTIONS (7)
  - DISTURBANCE IN ATTENTION [None]
  - DIZZINESS [None]
  - DRUG INTERACTION [None]
  - INITIAL INSOMNIA [None]
  - ROAD TRAFFIC ACCIDENT [None]
  - SOMNOLENCE [None]
  - UPPER LIMB FRACTURE [None]
